FAERS Safety Report 5942503-4 (Version None)
Quarter: 2008Q4

REPORT INFORMATION
  Report Type: 
  Country: None (occurrence: None)
  Receive Date: 20081105
  Receipt Date: 20081027
  Transmission Date: 20090506
  Serious: Yes (Disabling)
  Sender: FDA-Public Use
  Company Number: DK-PFIZER INC-2008090392

PATIENT
  Sex: Male

DRUGS (3)
  1. SULFASALAZINE [Suspect]
     Dates: start: 20010101, end: 20080101
  2. METHOTREXATE [Suspect]
     Indication: RHEUMATOID ARTHRITIS
     Dates: start: 20041001, end: 20080401
  3. ETANERCEPT [Suspect]
     Indication: RHEUMATOID ARTHRITIS
     Dates: start: 20071220, end: 20080212

REACTIONS (4)
  - ACUTE INTERSTITIAL PNEUMONITIS [None]
  - ACUTE PHASE REACTION [None]
  - PULMONARY FIBROSIS [None]
  - PYREXIA [None]
